FAERS Safety Report 7380142-1 (Version None)
Quarter: 2011Q1

REPORT INFORMATION
  Report Type: 
  Country: None (occurrence: None)
  Receive Date: 20110329
  Receipt Date: 20100917
  Transmission Date: 20110831
  Serious: No
  Sender: FDA-Public Use
  Company Number: US-MYLANLABS-2010S1013649

PATIENT
  Age: 56 Year
  Sex: Female

DRUGS (9)
  1. ESTRADIOL [Suspect]
     Indication: HORMONE REPLACEMENT THERAPY
     Dosage: CHANGED QW
     Route: 062
     Dates: start: 20100705, end: 20100818
  2. LACTOBACILLUS ACIDOPHILUS [Concomitant]
     Dosage: ULTRA FLORA IB (PROBIOTIC)
  3. IODINE [Concomitant]
  4. VITAMIN B COMPLEX CAP [Concomitant]
  5. THYROID PREPARATIONS [Concomitant]
     Indication: HYPOTHYROIDISM
     Dosage: BIO-THYROID (COMPOUND PHARMACY)
  6. CALCIUM + VITAMIN D [Concomitant]
     Dosage: WITH 400 IU VIT D
  7. DIGESTIVE ENZYMES [Concomitant]
  8. HERBAL MIXTURE [Concomitant]
     Dosage: ADRESET (ADRENAL SUPPORT FORMULA)
  9. VITAMIN TAB [Concomitant]
     Dosage: GNC WOMEN'S ULTRA MEGA VIT

REACTIONS (4)
  - RASH MACULAR [None]
  - APPLICATION SITE PRURITUS [None]
  - APPLICATION SITE ERYTHEMA [None]
  - APPLICATION SITE PAPULES [None]
